FAERS Safety Report 8053066-4 (Version None)
Quarter: 2012Q1

REPORT INFORMATION
  Report Type: 
  Country: None (occurrence: None)
  Receive Date: 20120118
  Receipt Date: 20120113
  Transmission Date: 20120608
  Serious: Yes (Other)
  Sender: FDA-Public Use
  Company Number: US-BAYER-2012-004626

PATIENT

DRUGS (1)
  1. MULTI-VITAMINS [Suspect]
     Route: 048

REACTIONS (5)
  - PAIN [None]
  - DYSPHAGIA [None]
  - FOREIGN BODY [None]
  - THROAT IRRITATION [None]
  - CHOKING [None]
